FAERS Safety Report 10636893 (Version 1)
Quarter: 2014Q4

REPORT INFORMATION
  Report Type: Spontaneous
  Country: US (occurrence: US)
  Receive Date: 20141208
  Receipt Date: 20141208
  Transmission Date: 20150529
  Serious: No
  Sender: FDA-Public Use
  Company Number: US-BIOGENIDEC-2014BI125679

PATIENT
  Age: 42 Year
  Sex: Female

DRUGS (1)
  1. TECFIDERA [Suspect]
     Active Substance: DIMETHYL FUMARATE
     Indication: RELAPSING-REMITTING MULTIPLE SCLEROSIS
     Route: 048
     Dates: start: 20140321

REACTIONS (7)
  - Vomiting [Not Recovered/Not Resolved]
  - Abdominal pain upper [Unknown]
  - Constipation [Not Recovered/Not Resolved]
  - Pyrexia [Unknown]
  - Large intestine polyp [Recovered/Resolved]
  - Flushing [Not Recovered/Not Resolved]
  - Nausea [Unknown]

NARRATIVE: CASE EVENT DATE: 201409
